FAERS Safety Report 23789470 (Version 1)
Quarter: 2024Q2

REPORT INFORMATION
  Report Type: Spontaneous
  Country: CA (occurrence: CA)
  Receive Date: 20240426
  Receipt Date: 20240426
  Transmission Date: 20240716
  Serious: Yes (Other)
  Sender: FDA-Public Use
  Company Number: CA-BAYER-2024A058291

PATIENT
  Age: 32 Year
  Sex: Female

DRUGS (3)
  1. MIRENA [Suspect]
     Active Substance: LEVONORGESTREL
     Dosage: 20?G/DAY
     Route: 015
     Dates: start: 20110908, end: 20140210
  2. CHOLECALCIFEROL [Concomitant]
     Active Substance: CHOLECALCIFEROL
  3. IBUPROFEN [Concomitant]
     Active Substance: IBUPROFEN

REACTIONS (7)
  - Ectopic pregnancy with contraceptive device [Recovered/Resolved]
  - Ruptured ectopic pregnancy [Recovered/Resolved]
  - Haemorrhage in pregnancy [None]
  - Haemoperitoneum [None]
  - Device dislocation [Recovered/Resolved]
  - Adnexa uteri mass [None]
  - Abdominal pain lower [None]

NARRATIVE: CASE EVENT DATE: 20131201
